FAERS Safety Report 8892591 (Version 1)
Quarter: 2012Q4

REPORT INFORMATION
  Report Type: 
  Country: US (occurrence: US)
  Receive Date: 20121107
  Receipt Date: 20121107
  Transmission Date: 20130627
  Serious: No
  Sender: FDA-Public Use
  Company Number: US-AMGEN-USASP2011058843

PATIENT
  Sex: Female

DRUGS (2)
  1. ENBREL [Suspect]
     Indication: RHEUMATOID ARTHRITIS
     Dosage: 50 mg, qwk
     Dates: start: 201108, end: 201110
  2. ENBREL [Suspect]
     Indication: PSORIASIS

REACTIONS (4)
  - Swelling face [Recovered/Resolved]
  - Oedema peripheral [Recovered/Resolved]
  - Pustular psoriasis [Not Recovered/Not Resolved]
  - Urticaria [Recovered/Resolved]
